FAERS Safety Report 7506905-7 (Version None)
Quarter: 2011Q2

REPORT INFORMATION
  Report Type: 
  Country: None (occurrence: None)
  Receive Date: 20110415
  Receipt Date: 20100921
  Transmission Date: 20111010
  Serious: Yes (Other)
  Sender: FDA-Public Use
  Company Number: 10-001368

PATIENT
  Age: 46 Year
  Sex: Female

DRUGS (1)
  1. LOESTRING 24 FE (NORETHINDRONE ACETATE, ETHINYL ESTRADIOL, FERROUS FUM [Suspect]
     Dosage: 20/1000 UG, QD, ORAL
     Route: 048

REACTIONS (2)
  - DEEP VEIN THROMBOSIS [None]
  - PULMONARY EMBOLISM [None]
